FAERS Safety Report 8178298-6 (Version None)
Quarter: 2012Q1

REPORT INFORMATION
  Report Type: 
  Country: None (occurrence: None)
  Receive Date: 20120126
  Receipt Date: 20110503
  Transmission Date: 20120608
  Serious: Yes (Hospitalization)
  Sender: FDA-Public Use
  Company Number: 032263

PATIENT
  Age: 58 Year
  Sex: Male
  Weight: 162.4 kg

DRUGS (7)
  1. CELECOXIB;IBUPROFEN/NAPROXEN; PLACEBO (INVESTIGATIONAL DRUG) [Suspect]
     Indication: OSTEOARTHRITIS
     Dosage: ORAL
     Route: 048
     Dates: start: 20100928
  2. NEXIUM [Concomitant]
  3. FUROSEMIDE [Concomitant]
  4. SPIRONOLACTONE [Concomitant]
  5. CARVEDILOL [Concomitant]
  6. METOLAZONE [Suspect]
     Dosage: ORAL
     Route: 048
     Dates: start: 20110304, end: 20110315
  7. PRAVASTATIN [Concomitant]

REACTIONS (1)
  - HYPOKALAEMIA [None]
